FAERS Safety Report 12173072 (Version 1)
Quarter: 2016Q1

REPORT INFORMATION
  Report Type: Spontaneous
  Country: JP (occurrence: JP)
  Receive Date: 20160311
  Receipt Date: 20160311
  Transmission Date: 20160526
  Serious: Yes (Hospitalization)
  Sender: FDA-Public Use
  Company Number: JP-TEVA-642044ISR

PATIENT
  Age: 3 Decade
  Sex: Male

DRUGS (1)
  1. MODIODAL TABLETS 100MG [Suspect]
     Active Substance: MODAFINIL
     Route: 048

REACTIONS (2)
  - Toxicity to various agents [Unknown]
  - Altered state of consciousness [Unknown]
